FAERS Safety Report 16412550 (Version 2)
Quarter: 2019Q2

REPORT INFORMATION
  Report Type: Report from Study
  Country: None (occurrence: CA)
  Receive Date: 20190610
  Receipt Date: 20190614
  Transmission Date: 20190711
  Serious: No
  Sender: FDA-Public Use
  Company Number: CA-ABBVIE-19K-028-2812802-00

PATIENT
  Age: 37 Year
  Sex: Female

DRUGS (1)
  1. HUMIRA [Suspect]
     Active Substance: ADALIMUMAB
     Indication: CROHN^S DISEASE
     Route: 058
     Dates: start: 20190307

REACTIONS (6)
  - Injection site bruising [Unknown]
  - Post-traumatic neck syndrome [Not Recovered/Not Resolved]
  - Aphonia [Recovered/Resolved]
  - Injection site haemorrhage [Recovered/Resolved]
  - Road traffic accident [Recovered/Resolved]
  - Asthma [Recovered/Resolved]

NARRATIVE: CASE EVENT DATE: 2019
